FAERS Safety Report 8976858 (Version 1)
Quarter: 2012Q4

REPORT INFORMATION
  Report Type: 
  Country: US (occurrence: US)
  Receive Date: 20121220
  Receipt Date: 20121220
  Transmission Date: 20130627
  Serious: Yes (Death, Other)
  Sender: FDA-Public Use
  Company Number: PHEH2012US024865

PATIENT
  Sex: Female
  Weight: 130.8 kg

DRUGS (2)
  1. GLEEVEC [Suspect]
     Dosage: 100 mg, BID
  2. GLEEVEC [Suspect]
     Dosage: 400 mg, QD

REACTIONS (2)
  - Death [Fatal]
  - Pulmonary valve incompetence [Unknown]
